FAERS Safety Report 11110530 (Version 1)
Quarter: 2015Q2

REPORT INFORMATION
  Report Type: Spontaneous
  Country: US (occurrence: US)
  Receive Date: 20150513
  Receipt Date: 20150513
  Transmission Date: 20150821
  Serious: Yes (Hospitalization)
  Sender: FDA-Public Use
  Company Number: US-BAXTER-2015BAX024990

PATIENT
  Sex: Male

DRUGS (2)
  1. 0.9% SODIUM CHLORIDE INJECTION [Suspect]
     Active Substance: SODIUM CHLORIDE
     Indication: CYST REMOVAL
     Route: 042
     Dates: start: 20140728
  2. CLINDAMYCIN PHOSPHATE. [Suspect]
     Active Substance: CLINDAMYCIN PHOSPHATE
     Indication: CYST REMOVAL
     Route: 042
     Dates: start: 20140728

REACTIONS (6)
  - Infusion site scar [Not Recovered/Not Resolved]
  - Venous injury [Not Recovered/Not Resolved]
  - Phlebitis [Not Recovered/Not Resolved]
  - Vein disorder [Recovered/Resolved]
  - Hypersensitivity [Not Recovered/Not Resolved]
  - Vascular pain [Recovered/Resolved]
